FAERS Safety Report 9665993 (Version 1)
Quarter: 2013Q4

REPORT INFORMATION
  Report Type: Spontaneous
  Country: US (occurrence: None)
  Receive Date: 20131031
  Receipt Date: 20131031
  Transmission Date: 20140711
  Serious: Yes (Other)
  Sender: FDA-Public Use
  Company Number: ADE13-028

PATIENT
  Age: 63 Year
  Sex: Male
  Weight: 95.26 kg

DRUGS (10)
  1. HEPARIN SODIUM [Suspect]
     Indication: ATRIAL FIBRILLATION
     Dosage: 22,000 U TOTAL DOSE, IV
     Dates: start: 20131024, end: 20131024
  2. HEPARIN SODIUM [Suspect]
     Indication: CARDIAC ABLATION
     Dosage: 22,000 U TOTAL DOSE, IV
     Dates: start: 20131024, end: 20131024
  3. FENTANYL [Concomitant]
  4. MIDAZOLAM [Concomitant]
  5. EPHEDRINE [Concomitant]
  6. PROPOFOL [Concomitant]
  7. ROCURONIUM [Concomitant]
  8. SUCCINYLCHOLINE [Concomitant]
  9. LIDOCAINE [Concomitant]
  10. PROTAMINE [Concomitant]

REACTIONS (1)
  - Drug ineffective [None]
